FAERS Safety Report 7231597-4 (Version None)
Quarter: 2011Q1

REPORT INFORMATION
  Report Type: 
  Country: None (occurrence: None)
  Receive Date: 20110118
  Receipt Date: 20110104
  Transmission Date: 20110831
  Serious: Yes (Hospitalization, Disabling)
  Sender: FDA-Public Use
  Company Number: AU-ELI_LILLY_AND_COMPANY-AU201012000374

PATIENT
  Age: 74 Year
  Sex: Male

DRUGS (1)
  1. ALIMTA [Suspect]
     Indication: ADENOCARCINOMA
     Dosage: 1000 MG, OTHER (EVERY 21 DAYS)
     Route: 065
     Dates: end: 20101122

REACTIONS (2)
  - LUNG INFILTRATION [None]
  - PNEUMONITIS [None]
